FAERS Safety Report 5259194-0 (Version None)
Quarter: 2007Q1

REPORT INFORMATION
  Report Type: 
  Country: None (occurrence: None)
  Receive Date: 20070308
  Receipt Date: 20070227
  Transmission Date: 20070707
  Serious: Yes (Hospitalization)
  Sender: FDA-Public Use
  Company Number: NO-PFIZER INC-2007012033

PATIENT
  Sex: Female

DRUGS (12)
  1. CHAMPIX [Suspect]
     Indication: EX-SMOKER
     Route: 048
  2. SPIRIVA ^PFIZER^ [Concomitant]
     Route: 048
  3. SYMBICORT [Concomitant]
     Route: 055
  4. OXIS [Concomitant]
     Route: 055
  5. ALBYL-E [Concomitant]
     Route: 048
  6. SIMVASTATIN [Concomitant]
     Route: 048
  7. AMLODIPINE [Concomitant]
     Route: 048
  8. VIVAL [Concomitant]
  9. IMOVANE [Concomitant]
  10. MUCOMYST [Concomitant]
  11. CIPRALEX [Concomitant]
     Dosage: DAILY DOSE:10MG
  12. TOLVON [Concomitant]

REACTIONS (19)
  - ABNORMAL DREAMS [None]
  - CHRONIC OBSTRUCTIVE PULMONARY DISEASE [None]
  - CONSTIPATION [None]
  - DEPRESSED MOOD [None]
  - DIARRHOEA [None]
  - DISTURBANCE IN ATTENTION [None]
  - DIZZINESS [None]
  - DRY MOUTH [None]
  - FATIGUE [None]
  - FLATULENCE [None]
  - HEADACHE [None]
  - HYPERHIDROSIS [None]
  - INSOMNIA [None]
  - NAUSEA [None]
  - PRODUCTIVE COUGH [None]
  - SKIN ODOUR ABNORMAL [None]
  - SOMNOLENCE [None]
  - VISUAL ACUITY REDUCED [None]
  - VOMITING [None]
